FAERS Safety Report 13059900 (Version 1)
Quarter: 2016Q4

REPORT INFORMATION
  Report Type: Spontaneous
  Country: LV (occurrence: LV)
  Receive Date: 20161223
  Receipt Date: 20161223
  Transmission Date: 20170207
  Serious: Yes (Other)
  Sender: FDA-Public Use
  Company Number: LV-AMGEN-LVASP2016181244

PATIENT
  Age: 74 Year
  Sex: Male
  Weight: 80 kg

DRUGS (4)
  1. PROCORALAN [Suspect]
     Active Substance: IVABRADINE
     Indication: CORONARY ARTERY DISEASE
     Dosage: 5 MG, BID
     Route: 065
     Dates: start: 20161019, end: 20161213
  2. ATORIS [Concomitant]
     Active Substance: ATORVASTATIN CALCIUM
     Indication: CORONARY ARTERY DISEASE
     Dosage: 40 MG, QD
     Dates: start: 2011
  3. BETAC [Concomitant]
     Indication: CORONARY ARTERY DISEASE
     Dosage: 5 MG, QD
     Route: 048
     Dates: start: 2013
  4. HJERTEMAGNYL [Concomitant]
     Active Substance: ASPIRIN\MAGNESIUM OXIDE
     Indication: CORONARY ARTERY DISEASE
     Dosage: 1 DF, QD
     Dates: start: 2012

REACTIONS (4)
  - Diplopia [Recovered/Resolved]
  - Visual field defect [Recovered/Resolved]
  - Dizziness [Recovered/Resolved]
  - Photopsia [Recovered/Resolved]

NARRATIVE: CASE EVENT DATE: 20161119
